FAERS Safety Report 26212790 (Version 1)
Quarter: 2025Q4

REPORT INFORMATION
  Report Type: Spontaneous
  Country: EU (occurrence: EU)
  Receive Date: 20251230
  Receipt Date: 20251230
  Transmission Date: 20260117
  Serious: Yes (Life-Threatening, Hospitalization, Other)
  Sender: SANDOZ
  Company Number: None

PATIENT
  Age: 56 Year
  Sex: Female
  Weight: 62 kg

DRUGS (48)
  1. PACLITAXEL [Suspect]
     Active Substance: PACLITAXEL
     Indication: Breast cancer
     Dosage: 80 MG/M2, QW  14-MAY-2025 00:00
  2. CARBOPLATIN [Suspect]
     Active Substance: CARBOPLATIN
     Indication: Breast cancer
     Dosage: 1.5 AUC 14-MAY-2025 00:00
  3. PEMBROLIZUMAB [Suspect]
     Active Substance: PEMBROLIZUMAB
     Indication: Breast cancer
     Dosage: 200 MG 14-MAY-2025 00:00
  4. PEMBROLIZUMAB [Suspect]
     Active Substance: PEMBROLIZUMAB
     Dosage: 200 MG 11-JUN-2025 00:00
  5. LACOSAMIDE [Concomitant]
     Active Substance: LACOSAMIDE
     Indication: Anticonvulsant drug level therapeutic
     Dosage: 200 MG, BID
     Dates: start: 20250728, end: 20250815
  6. ONDANSETRON [Concomitant]
     Active Substance: ONDANSETRON
     Indication: Vomiting
     Dosage: 4 MG AS NEEDED
     Dates: start: 20250612, end: 20250615
  7. ESOMEPRAZOLE SODIUM [Concomitant]
     Active Substance: ESOMEPRAZOLE SODIUM
     Indication: Product used for unknown indication
     Dosage: 20 MG, QD
     Dates: start: 20250710, end: 20250718
  8. IBUPROFEN [Concomitant]
     Active Substance: IBUPROFEN
     Indication: Headache
     Dosage: 400 MG  AS NEEDED
  9. IBUPROFEN [Concomitant]
     Active Substance: IBUPROFEN
     Dosage: 600 MG, QD
     Dates: start: 20250605, end: 20250606
  10. DEXMEDETOMIDINE HYDROCHLORIDE [Concomitant]
     Active Substance: DEXMEDETOMIDINE HYDROCHLORIDE
     Indication: Sedation
     Dosage: 8 UNK, QD
     Dates: start: 20250710, end: 20250718
  11. DEXAMETHASONE [Concomitant]
     Active Substance: DEXAMETHASONE
     Indication: Chemotherapy side effect prophylaxis
     Dosage: 8 MG, QD
  12. METHYLPREDNISOLONE [Concomitant]
     Active Substance: METHYLPREDNISOLONE
     Indication: Product used for unknown indication
     Dosage: 100 MG, QD
     Dates: start: 20250706, end: 20250712
  13. METHYLPREDNISOLONE [Concomitant]
     Active Substance: METHYLPREDNISOLONE
     Dosage: 100 MG, QD
     Dates: start: 20250701, end: 20250705
  14. METHYLPREDNISOLONE [Concomitant]
     Active Substance: METHYLPREDNISOLONE
     Dosage: 100 MG, QD
     Dates: start: 20250626, end: 20250630
  15. ACETAMINOPHEN [Concomitant]
     Active Substance: ACETAMINOPHEN
     Indication: Pyrexia
     Dosage: 1 G AS NEEDED
     Dates: start: 20250529, end: 20250602
  16. ACETAMINOPHEN [Concomitant]
     Active Substance: ACETAMINOPHEN
     Dosage: 1 G AS NEEDED
     Dates: start: 20250625, end: 20250710
  17. ACETAMINOPHEN [Concomitant]
     Active Substance: ACETAMINOPHEN
     Dosage: 1 G AS NEEDED
  18. Posiforlid [Concomitant]
     Indication: Lacrimation increased
     Dosage: 1 MG, AS NEEDED
     Route: 047
  19. RISPERDAL [Concomitant]
     Active Substance: RISPERIDONE
     Indication: Hallucination
     Dosage: 0.5 MG  AS NEEDED
     Dates: start: 20250627, end: 20250710
  20. DIMENHYDRINATE [Concomitant]
     Active Substance: DIMENHYDRINATE
     Indication: Nausea
     Dosage: 62 MG AS NEEDED
     Dates: start: 20250612, end: 20250612
  21. MIDAZOLAM [Concomitant]
     Active Substance: MIDAZOLAM
     Indication: Sedative therapy
     Dosage: 2 UNK, QD
     Dates: start: 20250710, end: 20250718
  22. LOPERAMIDE [Concomitant]
     Active Substance: LOPERAMIDE
     Indication: Antidiarrhoeal supportive care
     Dosage: 1 UNK, AS NEEDED
     Dates: start: 20250626, end: 20250710
  23. TAZOBACTAM [Concomitant]
     Active Substance: TAZOBACTAM
     Indication: Prophylaxis
     Dosage: 0.5 G, TID
     Dates: start: 20250611, end: 20250611
  24. TAZOBACTAM [Concomitant]
     Active Substance: TAZOBACTAM
     Dosage: 4.5 G, TID
     Dates: start: 20250714, end: 20250727
  25. ACYCLOVIR [Concomitant]
     Active Substance: ACYCLOVIR
     Indication: Paraneoplastic syndrome
     Dosage: 500 MG, QD
     Dates: start: 20250624, end: 20250629
  26. PROPRANOLOL HYDROCHLORIDE [Suspect]
     Active Substance: PROPRANOLOL HYDROCHLORIDE
     Indication: Tachycardia
     Dosage: 40 MG, AS NEEDED
     Dates: start: 20250710, end: 20250718
  27. LEVETIRACETAM [Concomitant]
     Active Substance: LEVETIRACETAM
     Indication: Product used for unknown indication
     Dosage: 1500 MG, BID
     Dates: start: 20250710, end: 20250815
  28. DIMETHINDENE [Concomitant]
     Active Substance: DIMETHINDENE
     Indication: Rash
     Dosage: 4 MG, QD
     Dates: start: 20250601, end: 20250602
  29. NOREPINEPHRINE [Concomitant]
     Active Substance: NOREPINEPHRINE
     Indication: Hypotension
     Dosage: 20 UNK, QD
     Dates: start: 20250710, end: 20250718
  30. DIAZEPAM [Concomitant]
     Active Substance: DIAZEPAM
     Indication: Agitation
     Dosage: 1 UNK, AS NEEDED
     Dates: start: 20250627, end: 20250710
  31. METAMIZOLE [Concomitant]
     Active Substance: METAMIZOLE
     Indication: Pyrexia
     Dosage: 500 MG, AS NEEDED
     Dates: start: 20250624, end: 20250710
  32. CEFUROXIME AXETIL [Concomitant]
     Active Substance: CEFUROXIME AXETIL
     Indication: Product substitution
     Dosage: 500 MG, TID
     Dates: start: 20250528, end: 20250605
  33. METOPROLOL [Concomitant]
     Active Substance: METOPROLOL
     Indication: Tachycardia
     Dosage: 1 UNK, AS NEEDED
     Dates: start: 20250627, end: 20250710
  34. Jonosteril [Concomitant]
     Indication: Product substitution
     Dosage: 500 ML, SINGLE
     Dates: start: 20250612, end: 20250612
  35. Jonosteril [Concomitant]
     Dosage: 500 ML, AS NEEDED
     Dates: start: 20250529, end: 20250606
  36. ACETYLCYSTEINE;BENZALKONIUM CHLORIDE;TUAMINOHEPTANE SULFATE [Concomitant]
     Indication: Thrombosis prophylaxis
     Dosage: 1 UNK, QD
     Dates: start: 20250623, end: 20250815
  37. HYDROMORPHONE [Concomitant]
     Active Substance: HYDROMORPHONE
     Indication: Drug use disorder
     Dosage: 200 UNK, QD
     Dates: start: 20250710, end: 20250718
  38. SIMETICON [Concomitant]
     Indication: Nausea
     Dosage: 40 MG, BID
     Dates: start: 20250624, end: 20250626
  39. MCP [Concomitant]
     Active Substance: METOCLOPRAMIDE HYDROCHLORIDE
     Indication: Nausea
     Dosage: 10 MG, AS NEEDED
  40. POLYETHYLENE GLYCOLS [Concomitant]
     Active Substance: POLYETHYLENE GLYCOLS
     Indication: Constipation
     Dosage: 1 UNK, QD
     Dates: start: 20250718, end: 20250828
  41. Hametum [Concomitant]
     Indication: Haemorrhoids
     Dosage: 62.5 MG, AS NEEDED
  42. PRIVIGEN [Concomitant]
     Active Substance: HUMAN IMMUNOGLOBULIN G
     Indication: Product used for unknown indication
     Dosage: 120 G, QD
     Dates: start: 20250701, end: 20250705
  43. METAMIZOL [Concomitant]
     Active Substance: METAMIZOLE SODIUM
     Indication: Headache
     Dosage: 500 MG, AS NEEDED
     Dates: start: 20250623, end: 20250710
  44. METAMIZOL [Concomitant]
     Active Substance: METAMIZOLE SODIUM
     Dosage: 20 UNK, AS NEEDED
     Dates: start: 20250612, end: 20250612
  45. PIPAMPERONE HYDROCHLORIDE [Concomitant]
     Active Substance: PIPAMPERONE HYDROCHLORIDE
     Indication: Antipsychotic therapy
     Dosage: 20 MG, BID
     Dates: start: 20250627, end: 20250710
  46. PIPERACILLIN [Concomitant]
     Active Substance: PIPERACILLIN
     Indication: Prophylaxis
     Dosage: 4 G, TID
     Dates: start: 20250611, end: 20250616
  47. GRANISETRON [Concomitant]
     Active Substance: GRANISETRON
     Indication: Chemotherapy
     Dosage: 1, AS NEEDED
     Dates: start: 20230623, end: 20250710
  48. GRANISETRON [Concomitant]
     Active Substance: GRANISETRON
     Dosage: 2 MG, AS NEEDED
     Dates: start: 20250514, end: 20250611

REACTIONS (2)
  - Paraneoplastic syndrome [Recovered/Resolved]
  - Encephalitis [Recovered/Resolved]

NARRATIVE: CASE EVENT DATE: 20250629
